FAERS Safety Report 7867540-4 (Version None)
Quarter: 2011Q4

REPORT INFORMATION
  Report Type: 
  Country: None (occurrence: None)
  Receive Date: 20111028
  Receipt Date: 20111021
  Transmission Date: 20120403
  Serious: Yes (Death, Hospitalization, Disabling, Other)
  Sender: FDA-Public Use
  Company Number: PHHY2009JP07276

PATIENT
  Sex: Male

DRUGS (20)
  1. EXJADE [Suspect]
     Dosage: 500 MG, UNK
     Route: 048
     Dates: end: 20090825
  2. NEORAL [Suspect]
     Dosage: 100 MG/DAY
     Route: 048
     Dates: start: 20081119, end: 20100508
  3. RED BLOOD CELLS, CONCENTRATED [Concomitant]
     Dosage: 2 UNITS
     Dates: start: 20090708
  4. RED BLOOD CELLS, CONCENTRATED [Concomitant]
     Dosage: 2 UNITS
     Dates: start: 20090827
  5. RED BLOOD CELLS, CONCENTRATED [Concomitant]
     Dosage: 2 UNITS
     Dates: start: 20100329
  6. MUCOSTA [Concomitant]
     Indication: PROPHYLAXIS
     Dosage: 300 / DAY
     Route: 048
     Dates: start: 20080618, end: 20090617
  7. EXJADE [Suspect]
     Indication: IRON OVERLOAD
     Dosage: 500 MG, UNK
     Route: 048
     Dates: start: 20081218
  8. RED BLOOD CELLS, CONCENTRATED [Concomitant]
     Dosage: 2 UNITS EVERY THREE WEEKS
     Dates: start: 20081224, end: 20090507
  9. EXJADE [Suspect]
     Indication: APLASTIC ANAEMIA
     Dosage: 500 MG, QD
     Route: 048
     Dates: start: 20080618
  10. PLATELETS [Concomitant]
     Dosage: 10 UNITS EVERY WEEK
     Dates: start: 20080618, end: 20090617
  11. RED BLOOD CELLS, CONCENTRATED [Concomitant]
     Dosage: 2 UNITS
     Dates: start: 20091029
  12. SOLU-CORTEF [Concomitant]
     Indication: PROPHYLAXIS
     Dosage: 100 MG,/ DAY
     Route: 042
     Dates: start: 20080618, end: 20090617
  13. RED BLOOD CELLS, CONCENTRATED [Concomitant]
     Dosage: 2 UNITS EVERY TWO WEEKS
  14. RED BLOOD CELLS, CONCENTRATED [Concomitant]
     Dosage: 2 UNITS EVERY FOUR WEEKS
     Dates: start: 20090507, end: 20090603
  15. KALIMATE [Concomitant]
     Dosage: 15 G,
     Route: 048
     Dates: start: 20080618, end: 20090617
  16. MAGNESIUM OXIDE [Concomitant]
     Indication: CONSTIPATION
     Dosage: 2 G, / DAY
     Route: 048
     Dates: start: 20080618, end: 20090617
  17. NEORAL [Suspect]
     Indication: APLASTIC ANAEMIA
     Dosage: 150 MG, QD
     Route: 048
     Dates: start: 20080618, end: 20081118
  18. RED BLOOD CELLS, CONCENTRATED [Concomitant]
     Dosage: 2 UNITS
     Dates: start: 20091013
  19. RED BLOOD CELLS, CONCENTRATED [Concomitant]
     Dosage: 2 UNITS
     Dates: start: 20100421
  20. GRAN [Concomitant]
     Indication: APLASTIC ANAEMIA
     Dosage: 300 UG / DAY
     Route: 042
     Dates: start: 20080618, end: 20090617

REACTIONS (7)
  - RENAL IMPAIRMENT [None]
  - CARDIAC FAILURE CONGESTIVE [None]
  - VIITH NERVE PARALYSIS [None]
  - HERPES ZOSTER [None]
  - BLOOD LACTATE DEHYDROGENASE INCREASED [None]
  - MULTI-ORGAN FAILURE [None]
  - BLOOD BILIRUBIN INCREASED [None]
